FAERS Safety Report 4940193-0 (Version None)
Quarter: 2006Q1

REPORT INFORMATION
  Report Type: 
  Country: None (occurrence: None)
  Receive Date: 20060310
  Receipt Date: 20031125
  Transmission Date: 20060701
  Serious: Yes (Hospitalization)
  Sender: FDA-Public Use
  Company Number: DE-ABBOTT-03P-062-0242442-00

PATIENT
  Sex: Female
  Weight: 58 kg

DRUGS (5)
  1. HUMIRA [Suspect]
     Indication: RHEUMATOID ARTHRITIS
     Route: 058
     Dates: start: 20001127
  2. SOTALOL HCL [Concomitant]
     Indication: TACHYARRHYTHMIA
     Route: 048
     Dates: start: 20000523
  3. LEKOVIT CA [Concomitant]
     Indication: OSTEOPENIA
     Route: 048
  4. ESTROGENS CONJUGATED [Concomitant]
     Indication: MENOPAUSAL SYMPTOMS
     Route: 048
     Dates: start: 19990531
  5. KETOROLAC TROMETHAMINE [Concomitant]
     Indication: DRUG USE FOR UNKNOWN INDICATION

REACTIONS (1)
  - AMAUROSIS [None]
